FAERS Safety Report 9431472 (Version 2)
Quarter: 2013Q3

REPORT INFORMATION
  Report Type: Spontaneous
  Country: US (occurrence: US)
  Receive Date: 20130730
  Receipt Date: 20130906
  Transmission Date: 20140515
  Serious: No
  Sender: FDA-Public Use
  Company Number: US-TEVA-421810USA

PATIENT
  Age: 23 Year
  Sex: Female
  Weight: 56.75 kg

DRUGS (3)
  1. PARAGARD 380A [Suspect]
     Indication: CONTRACEPTION
     Route: 015
     Dates: start: 20130404, end: 20130725
  2. PARAGARD 380A [Suspect]
     Route: 015
     Dates: start: 20130815
  3. TOPAMAX [Concomitant]
     Dosage: 1 TABLET TID PRN

REACTIONS (5)
  - Device expulsion [Recovered/Resolved]
  - Abdominal pain [Recovered/Resolved]
  - Abdominal pain [Recovered/Resolved]
  - Metrorrhagia [Not Recovered/Not Resolved]
  - Dysmenorrhoea [Not Recovered/Not Resolved]
